FAERS Safety Report 7210101-0 (Version None)
Quarter: 2011Q1

REPORT INFORMATION
  Report Type: 
  Country: None (occurrence: None)
  Receive Date: 20110105
  Receipt Date: 20101222
  Transmission Date: 20110831
  Serious: Yes (Other)
  Sender: FDA-Public Use
  Company Number: AU-RANBAXY-2010R3-40598

PATIENT

DRUGS (4)
  1. GABAPENTIN [Suspect]
     Indication: NERVOUS SYSTEM DISORDER
  2. NEULACTIL [Concomitant]
     Indication: PRODUCT USED FOR UNKNOWN INDICATION
     Route: 065
  3. GABAPENTIN [Suspect]
     Indication: NEURALGIA
     Dosage: 600 MG, UNK
     Route: 065
  4. LEXATON [Concomitant]
     Indication: PRODUCT USED FOR UNKNOWN INDICATION
     Route: 065

REACTIONS (4)
  - PARAESTHESIA [None]
  - HEAT STROKE [None]
  - PAIN [None]
  - MUSCLE SPASMS [None]
